FAERS Safety Report 6408820-9 (Version None)
Quarter: 2009Q4

REPORT INFORMATION
  Report Type: 
  Country: None (occurrence: None)
  Receive Date: 20091021
  Receipt Date: 20091013
  Transmission Date: 20100525
  Serious: Yes (Death)
  Sender: FDA-Public Use
  Company Number: B0598775A

PATIENT
  Age: 33 Year
  Sex: Female

DRUGS (17)
  1. ZANAMIVIR [Suspect]
     Indication: PNEUMONITIS
     Dosage: 600MG TWICE PER DAY
     Route: 042
     Dates: start: 20090918, end: 20090928
  2. FUROSEMID [Concomitant]
     Dosage: 470MG PER DAY
     Route: 042
  3. MIDAZOLAM HCL [Concomitant]
  4. LACTULOSE [Concomitant]
     Dosage: 20ML TWICE PER DAY
  5. PROPOFOL [Concomitant]
     Dosage: 20MG PER DAY
  6. HYDROCORTISON [Concomitant]
     Dosage: 50MG FOUR TIMES PER DAY
  7. PARACETAMOL [Concomitant]
     Dosage: 1G PER DAY
  8. UNKNOWN DRUG [Concomitant]
  9. OSELTAMIVIR [Concomitant]
     Dosage: 150MG TWICE PER DAY
     Route: 048
     Dates: start: 20090910, end: 20090923
  10. NOVORAPID [Concomitant]
     Route: 042
  11. POTASSIUM CHLORIDE [Concomitant]
     Dosage: 338MMOL PER DAY
     Route: 042
  12. FLUCONAZOLE [Concomitant]
     Dosage: 800MG PER DAY
     Route: 042
  13. FENTANYL CITRATE [Concomitant]
     Dosage: 240MCK PER DAY
  14. MEROPENEM [Concomitant]
     Dosage: 1G THREE TIMES PER DAY
     Route: 042
  15. DALTEPARIN [Concomitant]
     Dosage: 5000IU PER DAY
  16. CISATRACURIUM [Concomitant]
  17. ESOMEPRAZOLE MAGNESIUM [Concomitant]
     Dosage: 40MG PER DAY
     Route: 042

REACTIONS (1)
  - SINUS ARREST [None]
